FAERS Safety Report 17099187 (Version 1)
Quarter: 2019Q4

REPORT INFORMATION
  Report Type: Spontaneous
  Country: AU (occurrence: AU)
  Receive Date: 20191202
  Receipt Date: 20191202
  Transmission Date: 20200122
  Serious: Yes (Hospitalization, Other)
  Sender: FDA-Public Use
  Company Number: AU-PFIZER INC-2019506237

PATIENT
  Age: 53 Year
  Sex: Male

DRUGS (7)
  1. EPINEPHRINE. [Suspect]
     Active Substance: EPINEPHRINE
     Indication: CYANOSIS
  2. EPINEPHRINE. [Suspect]
     Active Substance: EPINEPHRINE
     Indication: ANAPHYLACTIC REACTION
     Dosage: 0.5 MG, UNK (TWO INJECTIONS)
     Route: 030
  3. EPINEPHRINE. [Suspect]
     Active Substance: EPINEPHRINE
     Indication: URTICARIA
  4. ISOTONIC [Concomitant]
     Dosage: 700 ML, UNK
     Route: 042
  5. HYDROCORTISONE. [Concomitant]
     Active Substance: HYDROCORTISONE
     Indication: ANAPHYLAXIS TREATMENT
     Dosage: 200 MG, UNK
     Route: 042
  6. HYDROCORTISONE. [Concomitant]
     Active Substance: HYDROCORTISONE
     Indication: URTICARIA
  7. HYDROCORTISONE. [Concomitant]
     Active Substance: HYDROCORTISONE
     Indication: CYANOSIS

REACTIONS (1)
  - Kounis syndrome [Recovered/Resolved]
